FAERS Safety Report 24525324 (Version 3)
Quarter: 2025Q3

REPORT INFORMATION
  Report Type: Spontaneous
  Country: US (occurrence: US)
  Receive Date: 20241019
  Receipt Date: 20250810
  Transmission Date: 20251020
  Serious: Yes (Other)
  Sender: ALEXION PHARMACEUTICALS
  Company Number: US-AstraZeneca-CH-00725134A

PATIENT
  Age: 80 Year
  Sex: Female
  Weight: 52.608 kg

DRUGS (8)
  1. LYNPARZA [Suspect]
     Active Substance: OLAPARIB
     Indication: Fallopian tube cancer
     Dosage: 150 MILLIGRAM, BID
     Dates: start: 20231006
  2. TYLENOL [Concomitant]
     Active Substance: ACETAMINOPHEN
     Dosage: 650 MILLIGRAM, BID
  3. CALCIUM CARBONATE [Concomitant]
     Active Substance: CALCIUM CARBONATE
     Dosage: 1 DOSAGE FORM, QD
     Route: 065
  4. VITAMIN D [Concomitant]
     Active Substance: VITAMIN D NOS
     Route: 065
  5. DENOSUMAB [Concomitant]
     Active Substance: DENOSUMAB
  6. DICLOFENAC SODIUM [Concomitant]
     Active Substance: DICLOFENAC SODIUM
  7. VITAMINS [Concomitant]
     Active Substance: VITAMINS
     Dosage: 1 DOSAGE FORM, QD
  8. POLYETHYLENE GLYCOL\PROPYLENE GLYCOL [Concomitant]
     Active Substance: POLYETHYLENE GLYCOL\PROPYLENE GLYCOL
     Route: 065

REACTIONS (9)
  - Neoplasm malignant [Unknown]
  - Alopecia [Unknown]
  - Fatigue [Unknown]
  - Epistaxis [Unknown]
  - Pulmonary mass [Unknown]
  - Amnesia [Unknown]
  - Headache [Unknown]
  - Pain in extremity [Unknown]
  - Skin infection [Unknown]
